FAERS Safety Report 9026685 (Version 1)
Quarter: 2013Q1

REPORT INFORMATION
  Report Type: Spontaneous
  Country: US (occurrence: None)
  Receive Date: 20130114
  Receipt Date: 20130114
  Transmission Date: 20140127
  Serious: Yes (Other)
  Sender: FDA-Public Use
  Company Number: None

PATIENT
  Age: 67 Year
  Sex: Male
  Weight: 79.38 kg

DRUGS (2)
  1. DEXILANT [Suspect]
     Route: 048
     Dates: start: 201208, end: 201209
  2. OMEPRAZOLE [Suspect]
     Dosage: MID SEPT -} 10-17-12. TAKE A.C. (BEFORE MEALS)
     Route: 048
     Dates: end: 20121017

REACTIONS (2)
  - Hypoaesthesia oral [None]
  - Hypoaesthesia [None]
